FAERS Safety Report 8303988-1 (Version None)
Quarter: 2012Q2

REPORT INFORMATION
  Report Type: 
  Country: None (occurrence: None)
  Receive Date: 20120420
  Receipt Date: 20120420
  Transmission Date: 20120825
  Serious: Yes (Hospitalization, Other)
  Sender: FDA-Public Use
  Company Number: None

PATIENT
  Sex: Female
  Weight: 74.8435 kg

DRUGS (1)
  1. LATUDA [Suspect]
     Indication: PSYCHOTIC DISORDER
     Dosage: 40 MG ONCE MOUTH
     Route: 048
     Dates: start: 20120406, end: 20120408

REACTIONS (4)
  - DYSTONIA [None]
  - EYE MOVEMENT DISORDER [None]
  - FOAMING AT MOUTH [None]
  - TREMOR [None]
